FAERS Safety Report 24216937 (Version 1)
Quarter: 2024Q3

REPORT INFORMATION
  Report Type: Spontaneous
  Country: US (occurrence: US)
  Receive Date: 20240816
  Receipt Date: 20240816
  Transmission Date: 20241017
  Serious: No
  Sender: SANOFI AVENTIS
  Company Number: US-SA-2023MK000074

PATIENT
  Age: 57 Year
  Sex: Female

DRUGS (4)
  1. AFREZZA [Suspect]
     Active Substance: INSULIN HUMAN
     Indication: Type 1 diabetes mellitus
     Dosage: 4 UNITS SEVERAL TIMES A DAY
     Dates: start: 2021
  2. AFREZZA [Suspect]
     Active Substance: INSULIN HUMAN
     Dosage: 8 UNITS SEVERAL TIMES A DAY
     Dates: start: 2021
  3. TRESIBA [Concomitant]
     Active Substance: INSULIN DEGLUDEC
     Indication: Product used for unknown indication
     Route: 065
  4. NOVOLOG [Concomitant]
     Active Substance: INSULIN ASPART
     Indication: Product used for unknown indication
     Route: 065

REACTIONS (5)
  - Hyperglycaemia [Unknown]
  - Product dosage form issue [Unknown]
  - Drug ineffective [Unknown]
  - Product use complaint [Unknown]
  - Product container issue [Unknown]
